FAERS Safety Report 15450312 (Version 1)
Quarter: 2018Q4

REPORT INFORMATION
  Report Type: Spontaneous
  Country: US (occurrence: US)
  Receive Date: 20181001
  Receipt Date: 20181001
  Transmission Date: 20190204
  Serious: No
  Sender: FDA-Public Use
  Company Number: US-PFIZER INC-2018247022

PATIENT
  Age: 12 Year
  Sex: Male
  Weight: 61.22 kg

DRUGS (1)
  1. GENOTROPIN [Suspect]
     Active Substance: SOMATROPIN
     Indication: BODY HEIGHT BELOW NORMAL
     Dosage: 1.6 MG, DAILY
     Route: 058
     Dates: start: 20171130

REACTIONS (6)
  - Blood thyroid stimulating hormone increased [Unknown]
  - Platelet count increased [Unknown]
  - Bone density increased [Unknown]
  - Blood thyroid stimulating hormone decreased [Unknown]
  - Product dose omission [Unknown]
  - Insulin-like growth factor increased [Unknown]

NARRATIVE: CASE EVENT DATE: 20180104
